FAERS Safety Report 4411964-4 (Version None)
Quarter: 2004Q2

REPORT INFORMATION
  Report Type: 
  Country: None (occurrence: None)
  Receive Date: 20040630
  Receipt Date: 20040326
  Transmission Date: 20050107
  Serious: No
  Sender: FDA-Public Use
  Company Number: 04P-163-0254829-00

PATIENT
  Age: 61 Year
  Sex: Female

DRUGS (7)
  1. HUMIRA [Suspect]
     Indication: RHEUMATOID ARTHRITIS
     Dosage: 40 MG, 1 IN 2 WK, SUBCUTANEOUS
     Route: 058
     Dates: start: 20040207
  2. LEVOTHYROXINE SODIUM [Concomitant]
  3. CITALOPRAM HYDROBROMIDE [Concomitant]
  4. LEFLUNOMIDE [Concomitant]
  5. LORAZEPAM [Concomitant]
  6. VICODIN [Concomitant]
  7. VITAMIINS [Concomitant]

REACTIONS (3)
  - COUGH [None]
  - NASOPHARYNGITIS [None]
  - PHARYNGOLARYNGEAL PAIN [None]
